FAERS Safety Report 4527004-2 (Version None)
Quarter: 2004Q4

REPORT INFORMATION
  Report Type: 
  Country: None (occurrence: None)
  Receive Date: 20041201
  Receipt Date: 20040916
  Transmission Date: 20050328
  Serious: No
  Sender: FDA-Public Use
  Company Number: MPS1-10279

PATIENT
  Age: 8 Year
  Sex: Female
  Weight: 20.3 kg

DRUGS (1)
  1. ALDURAZYME [Suspect]
     Dosage: 11.6 MG QWK IV
     Route: 042
     Dates: start: 20040914

REACTIONS (1)
  - RASH PRURITIC [None]
